FAERS Safety Report 7409046-2 (Version None)
Quarter: 2011Q2

REPORT INFORMATION
  Report Type: 
  Country: None (occurrence: None)
  Receive Date: 20110407
  Receipt Date: 20110407
  Transmission Date: 20111010
  Serious: Yes (Other)
  Sender: FDA-Public Use
  Company Number: None

PATIENT
  Sex: Male
  Weight: 113.3993 kg

DRUGS (2)
  1. OXYCODONE 30MG QUALITEST [Suspect]
     Indication: PAIN
     Dosage: PO
     Route: 048
     Dates: start: 20110325, end: 20110329
  2. OXYCODONE 15MG QUALITEST [Suspect]
     Indication: PAIN
     Dosage: PO
     Route: 048
     Dates: start: 20110325, end: 20110329

REACTIONS (8)
  - NAUSEA [None]
  - COLD SWEAT [None]
  - TREMOR [None]
  - DRUG INEFFECTIVE [None]
  - DRUG WITHDRAWAL SYNDROME [None]
  - VOMITING [None]
  - DIARRHOEA [None]
  - DYSGEUSIA [None]
